FAERS Safety Report 8837484 (Version 1)
Quarter: 2012Q4

REPORT INFORMATION
  Report Type: 
  Country: US (occurrence: US)
  Receive Date: 20121012
  Receipt Date: 20121012
  Transmission Date: 20130627
  Serious: Yes (Death)
  Sender: FDA-Public Use
  Company Number: PHEH2012US019993

PATIENT
  Sex: Female

DRUGS (1)
  1. GLEEVEC [Suspect]
     Indication: CARDIOVASCULAR DISORDER
     Dosage: 93 mg daily
     Route: 048
     Dates: start: 20120716

REACTIONS (1)
  - Death [Fatal]
